FAERS Safety Report 6782781-5 (Version None)
Quarter: 2010Q2

REPORT INFORMATION
  Report Type: 
  Country: None (occurrence: None)
  Receive Date: 20100621
  Receipt Date: 20100609
  Transmission Date: 20101027
  Serious: Yes (Hospitalization, Other)
  Sender: FDA-Public Use
  Company Number: FR-MERCK-1006FRA00048

PATIENT
  Age: 65 Year
  Sex: Male

DRUGS (3)
  1. COZAAR [Suspect]
     Indication: HYPERTENSION
     Route: 048
  2. RANITIDINE [Concomitant]
     Route: 048
  3. DILTIAZEM HYDROCHLORIDE [Suspect]
     Indication: MYOCARDIAL INFARCTION
     Route: 048

REACTIONS (2)
  - MYOCARDIAL INFARCTION [None]
  - SPIDER NAEVUS [None]
